FAERS Safety Report 10162269 (Version 1)
Quarter: 2014Q2

REPORT INFORMATION
  Report Type: Spontaneous
  Country: US (occurrence: US)
  Receive Date: 20140509
  Receipt Date: 20140509
  Transmission Date: 20141212
  Serious: No
  Sender: FDA-Public Use
  Company Number: US-BAYER-2014-068317

PATIENT
  Age: 80 Year
  Sex: Male
  Weight: 88.44 kg

DRUGS (2)
  1. ALEVE TABLET [Suspect]
     Indication: ARTHRALGIA
     Dosage: 2 DF, UNK
     Route: 048
     Dates: start: 20140419, end: 201404
  2. ALEVE TABLET [Suspect]
     Indication: ARTHRALGIA
     Dosage: 2 DF, BID
     Route: 048
     Dates: start: 201404

REACTIONS (3)
  - Incorrect drug administration duration [None]
  - Extra dose administered [None]
  - Drug effect delayed [None]
